FAERS Safety Report 23336593 (Version 1)
Quarter: 2023Q4

REPORT INFORMATION
  Report Type: Report from Study
  Country: US (occurrence: US)
  Receive Date: 20231226
  Receipt Date: 20231226
  Transmission Date: 20240110
  Serious: No
  Sender: FDA-Public Use
  Company Number: US-ACADIA PHARMACEUTICALS INC.-ACA-2023-TRF-005695

PATIENT
  Age: 36 Year
  Sex: Female

DRUGS (1)
  1. DAYBUE [Suspect]
     Active Substance: TROFINETIDE
     Dosage: UNK
     Route: 065

REACTIONS (5)
  - Anal incontinence [Unknown]
  - Flatulence [Unknown]
  - Abdominal distension [Unknown]
  - Urinary tract infection [Unknown]
  - Diarrhoea [Unknown]
